FAERS Safety Report 7409862-7 (Version None)
Quarter: 2011Q2

REPORT INFORMATION
  Report Type: 
  Country: None (occurrence: None)
  Receive Date: 20110412
  Receipt Date: 20110401
  Transmission Date: 20111010
  Serious: Yes (Hospitalization)
  Sender: FDA-Public Use
  Company Number: JP-ASTRAZENECA-2011SE19952

PATIENT
  Age: 29422 Day
  Sex: Male

DRUGS (6)
  1. TRANSAMIN [Concomitant]
     Route: 048
  2. ADONA [Concomitant]
     Route: 048
  3. MEROPEN [Suspect]
     Indication: FEBRILE NEUTROPENIA
     Route: 042
     Dates: start: 20110312, end: 20110319
  4. THEO-DUR [Concomitant]
  5. NEUTROGIN [Concomitant]
     Dates: start: 20110310, end: 20110317
  6. FLUTIDE:DISKUS [Concomitant]

REACTIONS (1)
  - LIVER FUNCTION TEST ABNORMAL [None]
